FAERS Safety Report 4383633-0 (Version None)
Quarter: 2004Q2

REPORT INFORMATION
  Report Type: 
  Country: None (occurrence: None)
  Receive Date: 20040623
  Receipt Date: 20040615
  Transmission Date: 20050107
  Serious: Yes (Other)
  Sender: FDA-Public Use
  Company Number: PHNR2004AU01072

PATIENT
  Age: 77 Year
  Sex: Female

DRUGS (6)
  1. LAMISIL [Suspect]
     Indication: DERMATOPHYTOSIS
     Dosage: 250 MG, QD
     Route: 048
     Dates: start: 20040209, end: 20040211
  2. EVISTA [Concomitant]
  3. TENORMIN [Concomitant]
  4. NATRILIX [Concomitant]
  5. CALTRATE [Concomitant]
  6. LIPITOR [Concomitant]

REACTIONS (5)
  - ABASIA [None]
  - DIZZINESS [None]
  - HYPOAESTHESIA [None]
  - MOBILITY DECREASED [None]
  - PARAESTHESIA [None]
